FAERS Safety Report 24007234 (Version 1)
Quarter: 2024Q2

REPORT INFORMATION
  Report Type: Report from Study
  Country: US (occurrence: US)
  Receive Date: 20240624
  Receipt Date: 20240624
  Transmission Date: 20240716
  Serious: Yes (Hospitalization, Other)
  Sender: FDA-Public Use
  Company Number: US-ABBVIE-5770666

PATIENT
  Age: 58 Year
  Sex: Female

DRUGS (1)
  1. HUMIRA [Suspect]
     Active Substance: ADALIMUMAB
     Indication: Crohn^s disease
     Route: 058
     Dates: start: 20150912, end: 20240517

REACTIONS (4)
  - Intestinal resection [Not Recovered/Not Resolved]
  - Seroma [Recovering/Resolving]
  - Pain [Not Recovered/Not Resolved]
  - Postoperative adhesion [Recovering/Resolving]

NARRATIVE: CASE EVENT DATE: 20240517
